FAERS Safety Report 13531466 (Version 1)
Quarter: 2017Q2

REPORT INFORMATION
  Report Type: Spontaneous
  Country: US (occurrence: US)
  Receive Date: 20170510
  Receipt Date: 20170510
  Transmission Date: 20170830
  Serious: Yes (Other)
  Sender: FDA-Public Use
  Company Number: US-BION-006293

PATIENT
  Age: 33 Year
  Sex: Male

DRUGS (1)
  1. LOPERAMIDE HYDROCHLORIDE UNKNOWN PRODUCT [Suspect]
     Active Substance: LOPERAMIDE HYDROCHLORIDE
     Dosage: 70-140 MG/DAY FOR SEVERAL MONTHS

REACTIONS (3)
  - Drug use disorder [Unknown]
  - Anxiety [Unknown]
  - Chest pain [Unknown]
